FAERS Safety Report 6840158-8 (Version None)
Quarter: 2010Q3

REPORT INFORMATION
  Report Type: 
  Country: None (occurrence: None)
  Receive Date: 20100714
  Receipt Date: 20100708
  Transmission Date: 20110219
  Serious: Yes (Other)
  Sender: FDA-Public Use
  Company Number: JP-B.I. PHARMACEUTICALS,INC./RIDGEFIELD-2010-BP-07344NB

PATIENT
  Sex: Male

DRUGS (4)
  1. SPIRIVA [Suspect]
     Indication: CHRONIC OBSTRUCTIVE PULMONARY DISEASE
     Dosage: 18 MCG
     Route: 055
     Dates: start: 20100617, end: 20100625
  2. ALVESCO [Concomitant]
     Indication: CHRONIC OBSTRUCTIVE PULMONARY DISEASE
     Dosage: 400 MCG
     Route: 055
     Dates: start: 20080707
  3. MUCODYNE [Concomitant]
     Indication: BRONCHITIS
     Dosage: 1500 MCG
     Route: 048
     Dates: start: 20100508
  4. HUSTAZOL [Concomitant]
     Indication: BRONCHITIS
     Dosage: 30 MG
     Route: 048
     Dates: start: 20100508

REACTIONS (1)
  - GLOSSITIS [None]
